FAERS Safety Report 22144526 (Version 1)
Quarter: 2023Q1

REPORT INFORMATION
  Report Type: Spontaneous
  Country: DE (occurrence: DE)
  Receive Date: 20230328
  Receipt Date: 20230328
  Transmission Date: 20230418
  Serious: Yes (Hospitalization, Other)
  Sender: FDA-Public Use
  Company Number: DE-BoehringerIngelheim-2023-BI-226401

PATIENT
  Age: 37 Year
  Sex: Male

DRUGS (4)
  1. NEVIRAPINE [Suspect]
     Active Substance: NEVIRAPINE
     Indication: HIV infection
  2. ZIDOVUDINE [Concomitant]
     Active Substance: ZIDOVUDINE
     Indication: HIV infection
  3. DOLUTEGRAVIR [Concomitant]
     Active Substance: DOLUTEGRAVIR
     Indication: HIV infection
  4. GANCICLOVIR [Concomitant]
     Active Substance: GANCICLOVIR
     Indication: HIV infection
     Route: 042

REACTIONS (4)
  - Retinal vasculitis [Recovering/Resolving]
  - Macular oedema [Recovered/Resolved]
  - Cytomegalovirus viraemia [Recovering/Resolving]
  - Cytomegalovirus chorioretinitis [Recovering/Resolving]
